FAERS Safety Report 8232024-0 (Version None)
Quarter: 2012Q1

REPORT INFORMATION
  Report Type: 
  Country: None (occurrence: None)
  Receive Date: 20120323
  Receipt Date: 20120313
  Transmission Date: 20120608
  Serious: Yes (Death, Life-Threatening, Other)
  Sender: FDA-Public Use
  Company Number: US-ABBOTT-11P-163-0840070-00

PATIENT
  Sex: Female
  Weight: 50.5 kg

DRUGS (23)
  1. LORATADINE [Concomitant]
     Indication: SINUSITIS
  2. HUMIRA [Suspect]
     Indication: RHEUMATOID ARTHRITIS
     Route: 058
     Dates: start: 20010425, end: 20110331
  3. MULTI-VITAMINS [Concomitant]
     Indication: VITAMIN SUPPLEMENTATION
     Route: 048
     Dates: start: 19900101
  4. SUMATRIPTAN [Concomitant]
     Indication: MIGRAINE
     Route: 048
     Dates: start: 20040910
  5. ESTROGEN [Concomitant]
     Indication: HORMONE REPLACEMENT THERAPY
     Route: 048
     Dates: start: 19780101, end: 20010101
  6. ESTROGEN [Concomitant]
     Route: 048
     Dates: start: 20010101
  7. FOLIC ACID [Concomitant]
     Indication: VITAMIN SUPPLEMENTATION
     Route: 048
     Dates: start: 20010426
  8. CALCIUM +D [Concomitant]
     Indication: MINERAL SUPPLEMENTATION
     Route: 048
     Dates: start: 20100524
  9. TYLENOL W/ CODEINE [Concomitant]
     Indication: ARTHRALGIA
     Route: 048
     Dates: start: 20021120
  10. LOPROX [Concomitant]
     Indication: ONYCHOLYSIS
     Route: 061
     Dates: start: 20030328
  11. CARISOPRODOL [Concomitant]
     Indication: FIBROMYALGIA
     Route: 048
     Dates: start: 20011005
  12. METHOTREXATE [Concomitant]
     Indication: RHEUMATOID ARTHRITIS
     Route: 048
     Dates: start: 20030425, end: 20090929
  13. METHOTREXATE [Concomitant]
  14. ALPRAZOLAM [Concomitant]
     Indication: ANXIETY
     Route: 048
     Dates: start: 19900101
  15. REFRESH TEARS [Concomitant]
     Indication: DRY EYE
     Dates: start: 20030108
  16. METHOTREXATE [Concomitant]
     Route: 048
     Dates: start: 20090930
  17. PREDNISONE TAB [Concomitant]
     Route: 048
     Dates: start: 20091118
  18. LORATADINE [Concomitant]
     Indication: UPPER RESPIRATORY TRACT INFECTION
     Route: 048
     Dates: start: 20011107
  19. LOPROX [Concomitant]
     Dosage: 0.77% AS NEEDED
     Route: 061
     Dates: start: 20030328
  20. PREDNISONE TAB [Concomitant]
     Indication: RHEUMATOID ARTHRITIS
     Route: 048
     Dates: start: 20030825
  21. TYLENOL W/ CODEINE [Concomitant]
  22. ALENDRONATE SODIUM [Concomitant]
     Indication: OSTEOPOROSIS
     Route: 048
     Dates: start: 20000301
  23. ZEGERID [Concomitant]
     Indication: DYSPEPSIA
     Route: 048
     Dates: start: 20110101

REACTIONS (2)
  - NON-SMALL CELL LUNG CANCER [None]
  - DEATH [None]
